FAERS Safety Report 6196944-3 (Version None)
Quarter: 2009Q2

REPORT INFORMATION
  Report Type: 
  Country: None (occurrence: None)
  Receive Date: 20090518
  Receipt Date: 20090508
  Transmission Date: 20091009
  Serious: Yes (Other)
  Sender: FDA-Public Use
  Company Number: 266327

PATIENT
  Age: 11 Year
  Sex: Female

DRUGS (3)
  1. METHOTREXATE [Suspect]
     Indication: POLYMYOSITIS
     Dosage: 15 MG/WEEK
     Dates: start: 20070501
  2. PREDNISOLONE [Suspect]
     Indication: POLYMYOSITIS
     Dosage: 50 MG
     Dates: start: 20070301
  3. AZATHIOPRINE [Suspect]
     Indication: POLYMYOSITIS
     Dosage: 50 MG
     Dates: start: 20070301

REACTIONS (3)
  - CONDITION AGGRAVATED [None]
  - DRUG WITHDRAWAL SYNDROME [None]
  - MUSCULAR DYSTROPHY [None]
